FAERS Safety Report 6346946-9 (Version None)
Quarter: 2009Q3

REPORT INFORMATION
  Report Type: 
  Country: None (occurrence: None)
  Receive Date: 20090908
  Receipt Date: 20090908
  Transmission Date: 20100115
  Serious: Yes (Disabling)
  Sender: FDA-Public Use
  Company Number: None

PATIENT
  Age: 23 Year
  Sex: Male
  Weight: 68.0396 kg

DRUGS (1)
  1. CIPRO [Suspect]
     Indication: DYSENTERY
     Dosage: 1 BID PO
     Route: 048
     Dates: start: 20090831, end: 20090903

REACTIONS (1)
  - TENDONITIS [None]
